FAERS Safety Report 22079531 (Version 2)
Quarter: 2023Q2

REPORT INFORMATION
  Report Type: Spontaneous
  Country: US (occurrence: US)
  Receive Date: 20230309
  Receipt Date: 20230504
  Transmission Date: 20230721
  Serious: Yes (Hospitalization, Other)
  Sender: FDA-Public Use
  Company Number: US-PFIZER INC-202300096742

PATIENT
  Age: 76 Year
  Sex: Female
  Weight: 68.04 kg

DRUGS (3)
  1. PAXLOVID [Suspect]
     Active Substance: NIRMATRELVIR\RITONAVIR
     Indication: COVID-19 treatment
     Dosage: [PF-07321332 300 MG]/[RITONAVIR 100 MG]; 2X/DAY
     Dates: start: 20230303, end: 20230308
  2. LOSARTAN [Concomitant]
     Active Substance: LOSARTAN
     Indication: Blood pressure measurement
     Dosage: 50 MG, 1X/DAY (MORNING)
  3. TAGAMET [Concomitant]
     Active Substance: CIMETIDINE
     Indication: Gastrooesophageal reflux disease
     Dosage: UNK

REACTIONS (13)
  - Cardiac flutter [Not Recovered/Not Resolved]
  - Diarrhoea [Recovered/Resolved]
  - Heart rate irregular [Not Recovered/Not Resolved]
  - Tremor [Unknown]
  - Asthenia [Not Recovered/Not Resolved]
  - Blood pressure increased [Unknown]
  - Headache [Recovered/Resolved]
  - Head discomfort [Unknown]
  - Rhinorrhoea [Unknown]
  - Decreased appetite [Unknown]
  - Dysgeusia [Unknown]
  - Nervousness [Unknown]
  - Anxiety [Unknown]

NARRATIVE: CASE EVENT DATE: 20230301
